FAERS Safety Report 7294943-1 (Version None)
Quarter: 2011Q1

REPORT INFORMATION
  Report Type: 
  Country: None (occurrence: None)
  Receive Date: 20110211
  Receipt Date: 20110211
  Transmission Date: 20110831
  Serious: Yes (Hospitalization, Other)
  Sender: FDA-Public Use
  Company Number: None

PATIENT
  Sex: Male
  Weight: 120.2032 kg

DRUGS (1)
  1. LISINOP/HCTZ 20-25 MG TAB [Suspect]
     Indication: BLOOD PRESSURE
     Dosage: 1 PILL DAILY
     Dates: start: 20101206, end: 20101223

REACTIONS (1)
  - HEPATITIS B [None]
